FAERS Safety Report 24809096 (Version 1)
Quarter: 2025Q1

REPORT INFORMATION
  Report Type: Spontaneous
  Country: CA (occurrence: CA)
  Receive Date: 20250106
  Receipt Date: 20250106
  Transmission Date: 20250409
  Serious: Yes (Other)
  Sender: JOHNSON AND JOHNSON
  Company Number: CA-JOHNSON + JOHNSON KOREA S+D LLC-20241208763

PATIENT

DRUGS (1)
  1. ACETAMINOPHEN [Suspect]
     Active Substance: ACETAMINOPHEN
     Indication: Product used for unknown indication
     Route: 065

REACTIONS (8)
  - Acute kidney injury [Unknown]
  - Respiratory depression [Unknown]
  - Adverse event [Unknown]
  - Constipation [Unknown]
  - Confusional state [Unknown]
  - Fall [Unknown]
  - Urinary tract disorder [Unknown]
  - Nausea [Unknown]
